FAERS Safety Report 5737154-0 (Version None)
Quarter: 2008Q2

REPORT INFORMATION
  Report Type: 
  Country: None (occurrence: None)
  Receive Date: 20080513
  Receipt Date: 20080513
  Transmission Date: 20081010
  Serious: Yes (Other)
  Sender: FDA-Public Use
  Company Number: None

PATIENT
  Age: 46 Year
  Sex: Female
  Weight: 58.9676 kg

DRUGS (1)
  1. YAZ [Suspect]
     Indication: MENOPAUSE
     Dosage: 1; 1 A DAY PO
     Route: 048
     Dates: start: 20080418, end: 20080512

REACTIONS (1)
  - HYPERTENSION [None]
